FAERS Safety Report 4284976-1 (Version None)
Quarter: 2004Q1

REPORT INFORMATION
  Report Type: 
  Country: None (occurrence: None)
  Receive Date: 20040202
  Receipt Date: 20040126
  Transmission Date: 20041129
  Serious: Yes (Hospitalization)
  Sender: FDA-Public Use
  Company Number: 2004-01-1793

PATIENT
  Sex: Female

DRUGS (3)
  1. SALBUTAMOL SULPHATE ORAL AEROSOL ' ILE PROVENTIL HFA ' [Suspect]
     Dosage: ORAL AER INH
     Route: 055
  2. BECLOMETHASONE DIPROPIONATE [Suspect]
     Dosage: INHALATION
     Route: 055
  3. ATACAND [Suspect]
     Dosage: ORAL
     Route: 048

REACTIONS (5)
  - ANTEPARTUM HAEMORRHAGE [None]
  - CARDIAC IMAGING PROCEDURE ABNORMAL [None]
  - COMPLICATIONS OF MATERNAL EXPOSURE TO THERAPEUTIC DRUGS [None]
  - MATERNAL DRUGS AFFECTING FOETUS [None]
  - PREMATURE BABY [None]
